FAERS Safety Report 5024987-1 (Version None)
Quarter: 2006Q2

REPORT INFORMATION
  Report Type: 
  Country: None (occurrence: None)
  Receive Date: 20060607
  Receipt Date: 20060529
  Transmission Date: 20061013
  Serious: Yes (Other)
  Sender: FDA-Public Use
  Company Number: 2006069301

PATIENT
  Age: 23 Year
  Sex: Female
  Weight: 50 kg

DRUGS (1)
  1. BENYLIN DM-2 EXTRA STRENGTH (DEXTROMETHORPHAN, GUAIFENESIN) [Suspect]
     Dosage: 90 ML ONCE, ORAL
     Route: 048
     Dates: start: 20060529, end: 20060529

REACTIONS (3)
  - INCORRECT DOSE ADMINISTERED [None]
  - MALAISE [None]
  - SOMNOLENCE [None]
